FAERS Safety Report 8977072 (Version 2)
Quarter: 2013Q1

REPORT INFORMATION
  Report Type: Report from Study
  Country: US (occurrence: US)
  Receive Date: 20121220
  Receipt Date: 20130103
  Transmission Date: 20140127
  Serious: Yes (Other)
  Sender: FDA-Public Use
  Company Number: US-JNJFOC-20121205160

PATIENT
  Sex: Male

DRUGS (1)
  1. SIMPONI [Suspect]
     Indication: PRODUCT USED FOR UNKNOWN INDICATION
     Route: 058

REACTIONS (6)
  - Condition aggravated [Unknown]
  - Spinal deformity [Unknown]
  - Drug ineffective [Unknown]
  - Pyrexia [Unknown]
  - Fatigue [Unknown]
  - Myalgia [Not Recovered/Not Resolved]
